FAERS Safety Report 10932802 (Version 1)
Quarter: 2015Q1

REPORT INFORMATION
  Report Type: Spontaneous
  Country: US (occurrence: US)
  Receive Date: 20150320
  Receipt Date: 20150320
  Transmission Date: 20150721
  Serious: No
  Sender: FDA-Public Use
  Company Number: US-TEVA-481604USA

PATIENT

DRUGS (2)
  1. MINOCYCLINE [Suspect]
     Active Substance: MINOCYCLINE\MINOCYCLINE HYDROCHLORIDE
  2. RELAFEN [Suspect]
     Active Substance: NABUMETONE

REACTIONS (1)
  - Migraine [Not Recovered/Not Resolved]
